FAERS Safety Report 20474614 (Version 1)
Quarter: 2022Q1

REPORT INFORMATION
  Report Type: Spontaneous
  Country: US (occurrence: None)
  Receive Date: 20220214
  Receipt Date: 20220214
  Transmission Date: 20220423
  Serious: Yes (Hospitalization)
  Sender: FDA-Public Use
  Company Number: None

PATIENT
  Age: 54 Year
  Sex: Female

DRUGS (1)
  1. CAPECITABINE [Suspect]
     Active Substance: CAPECITABINE
     Dosage: OTHER QUANTITY : 1500MG QAM, 1000MG;?FREQUENCY : TWICE A DAY;?
     Route: 048
     Dates: start: 20210909, end: 20220214

REACTIONS (3)
  - Gastric haemorrhage [None]
  - Blood bilirubin increased [None]
  - Jaundice [None]

NARRATIVE: CASE EVENT DATE: 20220214
